FAERS Safety Report 4718352-1 (Version None)
Quarter: 2005Q3

REPORT INFORMATION
  Report Type: 
  Country: None (occurrence: None)
  Receive Date: 20050718
  Receipt Date: 20041202
  Transmission Date: 20060218
  Serious: Yes (Other)
  Sender: FDA-Public Use
  Company Number: 240921

PATIENT
  Age: 54 Year
  Sex: Female

DRUGS (2)
  1. ACTIVELLA [Suspect]
     Indication: HORMONE REPLACEMENT THERAPY
     Dates: start: 20010611, end: 20020226
  2. PREMRO (ESTROGENS CONJUGATED, MEDROXYPROGESTERONE ACETATE) FILM-COATED [Concomitant]

REACTIONS (1)
  - BREAST CANCER [None]
